FAERS Safety Report 18915922 (Version 1)
Quarter: 2021Q1

REPORT INFORMATION
  Report Type: Spontaneous
  Country: NL (occurrence: NL)
  Receive Date: 20210219
  Receipt Date: 20210219
  Transmission Date: 20210420
  Serious: Yes (Other)
  Sender: FDA-Public Use
  Company Number: NL-SCIEGEN-2021SCILIT00153

PATIENT
  Age: 37 Year
  Sex: Male

DRUGS (3)
  1. COCAINE [Concomitant]
     Active Substance: COCAINE
     Indication: PRODUCT USED FOR UNKNOWN INDICATION
     Route: 065
  2. HYDROCHLOROTHIAZIDE TABLETS [Suspect]
     Active Substance: HYDROCHLOROTHIAZIDE
     Indication: PRODUCT USED FOR UNKNOWN INDICATION
     Dosage: 14 TABLETS
     Route: 048
  3. TERIFLUNOMIDE. [Concomitant]
     Active Substance: TERIFLUNOMIDE
     Indication: RELAPSING-REMITTING MULTIPLE SCLEROSIS
     Dosage: 48 TABLETS
     Route: 048

REACTIONS (3)
  - Pollakiuria [Unknown]
  - Poisoning [Unknown]
  - Intentional overdose [Unknown]
